FAERS Safety Report 15673470 (Version 2)
Quarter: 2018Q4

REPORT INFORMATION
  Report Type: Spontaneous
  Country: US (occurrence: US)
  Receive Date: 20181129
  Receipt Date: 20181130
  Transmission Date: 20190205
  Serious: No
  Sender: FDA-Public Use
  Company Number: US-PFIZER INC-2018476130

PATIENT
  Age: 75 Year
  Sex: Female
  Weight: 98.43 kg

DRUGS (1)
  1. DOFETILIDE. [Suspect]
     Active Substance: DOFETILIDE
     Indication: ATRIAL FIBRILLATION
     Dosage: 500 MG, 2X/DAY(IN THE MORNING AND IN THE EVENING)
     Route: 048
     Dates: start: 201810

REACTIONS (2)
  - Dizziness [Not Recovered/Not Resolved]
  - Vertigo [Recovered/Resolved with Sequelae]

NARRATIVE: CASE EVENT DATE: 201810
